FAERS Safety Report 25491063 (Version 1)
Quarter: 2025Q2

REPORT INFORMATION
  Report Type: Spontaneous
  Country: US (occurrence: US)
  Receive Date: 20250629
  Receipt Date: 20250629
  Transmission Date: 20250717
  Serious: No
  Sender: DR REDDYS
  Company Number: US-DRL-USA-USA/2025/06/008782

PATIENT
  Sex: Female

DRUGS (1)
  1. NATEGLINIDE [Suspect]
     Active Substance: NATEGLINIDE
     Indication: Blood glucose increased
     Route: 065

REACTIONS (2)
  - Drug ineffective [Unknown]
  - Dizziness [Unknown]
